FAERS Safety Report 19568344 (Version 2)
Quarter: 2021Q3

REPORT INFORMATION
  Report Type: Report from Study
  Country: US (occurrence: US)
  Receive Date: 20210715
  Receipt Date: 20210722
  Transmission Date: 20211014
  Serious: No
  Sender: FDA-Public Use
  Company Number: US-DSJP-DSU-2021-121795

PATIENT
  Sex: Female

DRUGS (1)
  1. PEXIDARTINIB [Suspect]
     Active Substance: PEXIDARTINIB
     Indication: SYNOVITIS
     Dosage: 200 MG, BID
     Route: 048
     Dates: start: 20210612

REACTIONS (9)
  - Decreased appetite [Recovered/Resolved]
  - Fatigue [Recovered/Resolved]
  - Hair colour changes [Recovered/Resolved]
  - Neuropathy peripheral [Recovered/Resolved]
  - Frequent bowel movements [Not Recovered/Not Resolved]
  - Product dose omission issue [Recovered/Resolved]
  - Aspartate aminotransferase increased [Recovering/Resolving]
  - Alanine aminotransferase increased [Recovering/Resolving]
  - Emotional disorder [Recovered/Resolved]

NARRATIVE: CASE EVENT DATE: 2021
